FAERS Safety Report 5022898-9 (Version None)
Quarter: 2006Q2

REPORT INFORMATION
  Report Type: 
  Country: None (occurrence: None)
  Receive Date: 20060426
  Receipt Date: 20060116
  Transmission Date: 20061013
  Serious: Yes (Other)
  Sender: FDA-Public Use
  Company Number: 2006008904

PATIENT
  Age: 89 Year
  Sex: Female
  Weight: 7.7111 kg

DRUGS (7)
  1. LYRICA [Suspect]
     Indication: NEUROPATHY PERIPHERAL
     Dosage: 300 MG (150 MG, 2 IN 1 D)
     Dates: start: 20060113, end: 20060113
  2. WARFARIN (WARFARIN) [Concomitant]
  3. ATENOLOL [Concomitant]
  4. LANOXIN [Concomitant]
  5. CLONIDINE [Concomitant]
  6. EDECRIN (ETACRYNIC ACID) [Concomitant]
  7. TORSEMIDE [Concomitant]

REACTIONS (3)
  - DIZZINESS [None]
  - GAIT DISTURBANCE [None]
  - TONGUE DISORDER [None]
